FAERS Safety Report 20999600 (Version 1)
Quarter: 2022Q2

REPORT INFORMATION
  Report Type: Spontaneous
  Country: CA (occurrence: CA)
  Receive Date: 20220623
  Receipt Date: 20220623
  Transmission Date: 20220721
  Serious: Yes (Other)
  Sender: FDA-Public Use
  Company Number: CA-BIOGEN-2022BI01132800

PATIENT
  Age: 58 Year
  Sex: Female

DRUGS (12)
  1. TYSABRI [Suspect]
     Active Substance: NATALIZUMAB
     Indication: Product used for unknown indication
     Dosage: DURATION: 730 (UNSPECIFIED UNIT)
     Route: 042
  2. TECFIDERA [Suspect]
     Active Substance: DIMETHYL FUMARATE
     Indication: Product used for unknown indication
     Route: 065
  3. AUBAGIO [Suspect]
     Active Substance: TERIFLUNOMIDE
     Indication: Product used for unknown indication
     Route: 065
  4. BETASERON [Suspect]
     Active Substance: INTERFERON BETA-1B
     Indication: Product used for unknown indication
     Dosage: POWDER FOR SOLUTION
     Route: 065
  5. GILENYA [Suspect]
     Active Substance: FINGOLIMOD HYDROCHLORIDE
     Indication: Secondary progressive multiple sclerosis
     Dosage: DURATION: 365 (UNSPECIFIED UNIT)
     Route: 048
  6. GILENYA [Suspect]
     Active Substance: FINGOLIMOD HYDROCHLORIDE
     Route: 048
  7. MAYZENT [Suspect]
     Active Substance: SIPONIMOD
     Indication: Secondary progressive multiple sclerosis
     Route: 048
  8. MAYZENT [Suspect]
     Active Substance: SIPONIMOD
     Route: 048
  9. MAYZENT [Suspect]
     Active Substance: SIPONIMOD
     Route: 048
  10. MITOXANTRONE [Suspect]
     Active Substance: MITOXANTRONE HYDROCHLORIDE
     Indication: Product used for unknown indication
     Route: 065
  11. AVONEX [Concomitant]
     Active Substance: INTERFERON BETA-1A
     Indication: Product used for unknown indication
     Route: 030
  12. REBIF [Concomitant]
     Active Substance: INTERFERON BETA-1A
     Indication: Product used for unknown indication
     Route: 058

REACTIONS (11)
  - Balance disorder [Recovered/Resolved]
  - Drug intolerance [Recovered/Resolved]
  - Eye pain [Recovered/Resolved]
  - Heart rate decreased [Recovered/Resolved]
  - Treatment failure [Recovered/Resolved]
  - Multiple sclerosis relapse [Recovered/Resolved]
  - Chills [Recovered/Resolved]
  - Dizziness [Recovered/Resolved]
  - Fatigue [Recovered/Resolved]
  - Headache [Recovered/Resolved]
  - Nausea [Recovered/Resolved]
